FAERS Safety Report 7629001-7 (Version None)
Quarter: 2011Q3

REPORT INFORMATION
  Report Type: 
  Country: None (occurrence: None)
  Receive Date: 20110715
  Receipt Date: 20110704
  Transmission Date: 20111222
  Serious: Yes (Death)
  Sender: FDA-Public Use
  Company Number: 972449

PATIENT

DRUGS (6)
  1. CISPLATIN [Suspect]
     Indication: NON-SMALL CELL LUNG CANCER STAGE IV
  2. SAQUINAVIR [Suspect]
     Indication: HIV INFECTION
  3. RITONAVIR [Suspect]
     Indication: HIV INFECTION
  4. LAMIVUDINE [Concomitant]
  5. ZIDOVUDINE [Suspect]
     Indication: HIV INFECTION
  6. VINORELBINE TARTRATE [Suspect]
     Indication: NON-SMALL CELL LUNG CANCER STAGE IV

REACTIONS (3)
  - NEUTROPENIA [None]
  - SEPTIC SHOCK [None]
  - DRUG INTERACTION [None]
